FAERS Safety Report 9796284 (Version 4)
Quarter: 2014Q1

REPORT INFORMATION
  Report Type: Spontaneous
  Country: US (occurrence: US)
  Receive Date: 20140103
  Receipt Date: 20140313
  Transmission Date: 20141002
  Serious: No
  Sender: FDA-Public Use
  Company Number: US-PFIZER INC-2014000267

PATIENT
  Age: 47 Year
  Sex: Male
  Weight: 77.1 kg

DRUGS (1)
  1. VIAGRA [Suspect]
     Indication: ERECTILE DYSFUNCTION
     Dosage: 100 MG, UNK
     Route: 048

REACTIONS (1)
  - Drug ineffective [Unknown]
